FAERS Safety Report 5723022-7 (Version None)
Quarter: 2008Q2

REPORT INFORMATION
  Report Type: 
  Country: None (occurrence: None)
  Receive Date: 20080428
  Receipt Date: 20080428
  Transmission Date: 20081010
  Serious: Yes (Other)
  Sender: FDA-Public Use
  Company Number: None

PATIENT
  Age: 59 Year
  Sex: Male

DRUGS (10)
  1. PROVENTIL-HFA [Suspect]
     Indication: ASTHMA
     Dosage: USE 1 TO 2 INHALATIONS THREE TIMES DAILY AS NEEDED
     Route: 055
     Dates: start: 20080301
  2. SINGULAIR [Concomitant]
  3. SPIRONOLACTONE [Concomitant]
  4. ADVAIR HFA [Concomitant]
  5. LIPITOR [Concomitant]
  6. SOTALOL HCL [Concomitant]
  7. CARVEDILOL [Concomitant]
  8. FLOMAX [Concomitant]
  9. DIGOXIN [Concomitant]
  10. WARFARIN SODIUM [Concomitant]

REACTIONS (2)
  - ASTHMA [None]
  - PHARMACEUTICAL PRODUCT COMPLAINT [None]
